FAERS Safety Report 17094027 (Version 13)
Quarter: 2023Q2

REPORT INFORMATION
  Report Type: Report from Study
  Country: US (occurrence: US)
  Receive Date: 20191129
  Receipt Date: 20230623
  Transmission Date: 20230721
  Serious: Yes (Other)
  Sender: FDA-Public Use
  Company Number: US-JAZZ-2019-US-016620

PATIENT
  Age: 59 Year
  Sex: Male

DRUGS (87)
  1. XYREM [Suspect]
     Active Substance: SODIUM OXYBATE
     Indication: Pain
     Dosage: 3 G, BID
     Route: 048
     Dates: start: 201010, end: 201011
  2. XYREM [Suspect]
     Active Substance: SODIUM OXYBATE
     Dosage: DOSE ADJUSTMENT
     Route: 048
     Dates: start: 201012, end: 201407
  3. XYREM [Suspect]
     Active Substance: SODIUM OXYBATE
     Dosage: 5 G, FIRST DOSE
     Route: 048
     Dates: start: 201407
  4. XYREM [Suspect]
     Active Substance: SODIUM OXYBATE
     Dosage: 4 G, SECOND DOSE
     Route: 048
     Dates: start: 201407
  5. CELEBREX [Suspect]
     Active Substance: CELECOXIB
     Indication: Product used for unknown indication
     Dosage: 400 MG, UNK
     Dates: start: 20160108
  6. CELEBREX [Suspect]
     Active Substance: CELECOXIB
     Dosage: 200 MG
  7. CYCLOBENZAPRINE [Suspect]
     Active Substance: CYCLOBENZAPRINE
     Indication: Product used for unknown indication
     Dosage: UNK
     Dates: start: 201804
  8. CHLORTHALIDONE [Concomitant]
     Active Substance: CHLORTHALIDONE
     Indication: Product used for unknown indication
     Dosage: UNK
     Dates: start: 201909, end: 201909
  9. ACETYLCYSTEINE [Concomitant]
     Active Substance: ACETYLCYSTEINE
     Indication: Product used for unknown indication
     Dosage: UNK
     Dates: start: 201909
  10. SENNA LAXATIVE [Concomitant]
     Active Substance: SENNOSIDES
     Indication: Product used for unknown indication
     Dosage: UNK
     Dates: start: 201909
  11. TRINTELLIX [Concomitant]
     Active Substance: VORTIOXETINE HYDROBROMIDE
     Indication: Product used for unknown indication
     Dosage: UNK
     Dates: start: 20190225, end: 201904
  12. DOXYCYCLINE HYCLATE [Concomitant]
     Active Substance: DOXYCYCLINE HYCLATE
     Indication: Product used for unknown indication
     Dosage: UNK
     Dates: start: 20190130, end: 20190206
  13. VIAGRA [Concomitant]
     Active Substance: SILDENAFIL CITRATE
     Indication: Product used for unknown indication
     Dosage: UNK
     Dates: start: 201811
  14. BREO ELLIPTA [Concomitant]
     Active Substance: FLUTICASONE FUROATE\VILANTEROL TRIFENATATE
     Indication: Product used for unknown indication
     Dosage: UNK
     Dates: start: 201810
  15. FUROSEMIDE [Concomitant]
     Active Substance: FUROSEMIDE
     Indication: Product used for unknown indication
     Dosage: UNK
     Dates: start: 201810
  16. ASPIRIN [Concomitant]
     Active Substance: ASPIRIN
     Indication: Product used for unknown indication
     Dosage: UNK
     Dates: start: 20180706, end: 201807
  17. LISINOPRIL [Concomitant]
     Active Substance: LISINOPRIL
     Indication: Product used for unknown indication
     Dosage: UNK
     Dates: start: 201805
  18. PROPYLENE GLYCOL [Concomitant]
     Active Substance: PROPYLENE GLYCOL
     Indication: Product used for unknown indication
     Dosage: UNK
     Dates: start: 201804, end: 201909
  19. TIZANIDINE HYDROCHLORIDE [Concomitant]
     Active Substance: TIZANIDINE HYDROCHLORIDE
     Indication: Product used for unknown indication
     Dosage: UNK
     Dates: start: 201802, end: 201809
  20. PROPRANOLOL [Concomitant]
     Active Substance: PROPRANOLOL HYDROCHLORIDE
     Indication: Product used for unknown indication
     Dosage: UNK
     Dates: start: 201802, end: 201805
  21. VITAMIN C [Concomitant]
     Active Substance: ASCORBIC ACID
     Indication: Product used for unknown indication
     Dosage: UNK
     Dates: start: 201801
  22. FLOVENT HFA [Concomitant]
     Active Substance: FLUTICASONE PROPIONATE
     Indication: Product used for unknown indication
     Dosage: UNK
     Dates: start: 201712, end: 201810
  23. NAMENDA [Concomitant]
     Active Substance: MEMANTINE HYDROCHLORIDE
     Indication: Product used for unknown indication
     Dosage: UNK
     Dates: start: 201710, end: 201712
  24. BACTRIM [Concomitant]
     Active Substance: SULFAMETHOXAZOLE\TRIMETHOPRIM
     Indication: Product used for unknown indication
     Dosage: UNK
     Dates: start: 20171002, end: 201710
  25. MISOPROSTOL [Concomitant]
     Active Substance: MISOPROSTOL
     Indication: Product used for unknown indication
     Dosage: UNK
     Dates: start: 201706, end: 201707
  26. HERBALS\TURMERIC [Concomitant]
     Active Substance: HERBALS\TURMERIC
     Indication: Product used for unknown indication
     Dosage: UNKNOWN DOSE
     Dates: start: 201710, end: 201712
  27. ZITHROMAX [Concomitant]
     Active Substance: AZITHROMYCIN DIHYDRATE
     Indication: Product used for unknown indication
     Dosage: UNKNOWN DOSE
     Dates: start: 20170208, end: 20170212
  28. OXYCONTIN [Concomitant]
     Active Substance: OXYCODONE HYDROCHLORIDE
     Indication: Product used for unknown indication
     Dosage: UNKNOWN DOSE
     Dates: start: 201701
  29. TESTOSTERONE CYPIONATE [Concomitant]
     Active Substance: TESTOSTERONE CYPIONATE
     Indication: Product used for unknown indication
     Dosage: UNKNONW DOSE
     Dates: start: 201610, end: 201710
  30. PREVIDENT [Concomitant]
     Active Substance: SODIUM FLUORIDE
     Indication: Product used for unknown indication
     Dosage: UNKNOWN DOSE
     Dates: start: 201608
  31. PROAIR HFA [Concomitant]
     Active Substance: ALBUTEROL SULFATE
     Indication: Product used for unknown indication
     Dosage: UNKNOWN DOSE
     Dates: start: 201608
  32. VITAMIN B COMPLEX [Concomitant]
     Active Substance: CYANOCOBALAMIN\DEXPANTHENOL\NIACINAMIDE\PYRIDOXINE HYDROCHLORIDE\RIBOFLAVIN 5^-PHOSPHATE SODIUM\THIA
     Indication: Product used for unknown indication
     Dosage: UNKNOWN DOSE
     Dates: start: 201607
  33. TESTOSTERONE [Concomitant]
     Active Substance: TESTOSTERONE
     Indication: Product used for unknown indication
     Dosage: UNKNOWN DOSE
     Dates: start: 201605, end: 201610
  34. BETAINE HCL [Concomitant]
     Indication: Product used for unknown indication
     Dosage: UNK
     Dates: start: 201602, end: 201707
  35. AMBIEN [Concomitant]
     Active Substance: ZOLPIDEM TARTRATE
     Indication: Product used for unknown indication
     Dosage: 0000
     Dates: start: 20160108, end: 201712
  36. OMEPRAZOLE [Concomitant]
     Active Substance: OMEPRAZOLE
     Indication: Product used for unknown indication
     Dosage: UNK
     Dates: start: 20160108, end: 20160430
  37. TRILEPTAL [Concomitant]
     Active Substance: OXCARBAZEPINE
     Indication: Product used for unknown indication
     Dosage: 0000
     Dates: start: 20160108, end: 20161004
  38. PRASTERONE [Concomitant]
     Active Substance: PRASTERONE
     Indication: Product used for unknown indication
     Dosage: UNKNOWN DOSE
     Dates: start: 20160104, end: 20170731
  39. ZINC [Concomitant]
     Active Substance: ZINC
     Indication: Product used for unknown indication
     Dosage: UNKNOWN DOSE
     Dates: start: 20160104, end: 20160930
  40. FISH OIL [Concomitant]
     Active Substance: FISH OIL
     Indication: Product used for unknown indication
     Dosage: 0000
     Dates: start: 20151215, end: 20170731
  41. MELATONIN [Concomitant]
     Active Substance: MELATONIN
     Indication: Product used for unknown indication
     Dosage: UNKNOWN DOSE
     Dates: start: 20151215
  42. ACETYLCYSTEINE [Concomitant]
     Active Substance: ACETYLCYSTEINE
     Indication: Product used for unknown indication
     Dosage: UNKNOWN DOSE
     Dates: start: 20151215, end: 20190904
  43. SENNOSIDES A AND B [Concomitant]
     Active Substance: SENNOSIDES A AND B
     Indication: Product used for unknown indication
     Dosage: UNKNOWN DOSE
     Dates: start: 20151215, end: 20170731
  44. VIIBRYD [Concomitant]
     Active Substance: VILAZODONE HYDROCHLORIDE
     Indication: Product used for unknown indication
     Dosage: 0000
     Dates: start: 20151215
  45. VITAMIN D3 [Concomitant]
     Active Substance: CHOLECALCIFEROL
     Indication: Product used for unknown indication
     Dosage: UNKNOWN DOSE
     Dates: start: 20151215
  46. GENTIAN VIOLET [Concomitant]
     Active Substance: GENTIAN VIOLET
     Indication: Product used for unknown indication
     Dosage: UNKNOWN DOSE
     Dates: start: 201512, end: 201710
  47. LAMISIL [Concomitant]
     Active Substance: TERBINAFINE HYDROCHLORIDE
     Indication: Product used for unknown indication
     Dosage: UNKNOWN DOSE
     Dates: start: 201512, end: 201710
  48. MS CONTIN [Concomitant]
     Active Substance: MORPHINE SULFATE
     Indication: Product used for unknown indication
     Dosage: UNKNOWN DOSE
     Dates: start: 20150820, end: 20170118
  49. OXYCODONE HYDROCHLORIDE [Concomitant]
     Active Substance: OXYCODONE HYDROCHLORIDE
     Indication: Product used for unknown indication
     Dosage: 0000
     Dates: start: 20150317
  50. TOPIRAMATE [Concomitant]
     Active Substance: TOPIRAMATE
     Indication: Product used for unknown indication
     Dosage: UNKNOWN DOSE
     Dates: start: 20131018, end: 20161216
  51. MORPHINE SULFATE [Concomitant]
     Active Substance: MORPHINE SULFATE
     Indication: Product used for unknown indication
     Dosage: UNKNOWN DOSE
     Dates: start: 20120907, end: 20160104
  52. DOCUSATE CALCIUM [Concomitant]
     Active Substance: DOCUSATE CALCIUM
     Indication: Product used for unknown indication
     Dosage: UNKNOWN DOSE
  53. DOCUSATE CALCIUM [Concomitant]
     Active Substance: DOCUSATE CALCIUM
     Dosage: UNKNOWN DOSE
  54. BACLOFEN [Concomitant]
     Active Substance: BACLOFEN
     Indication: Product used for unknown indication
     Dosage: UNKNOWN DOSE
     Dates: start: 20081215
  55. DIAZEPAM [Concomitant]
     Active Substance: DIAZEPAM
     Indication: Product used for unknown indication
     Dosage: UNKNOWN DOSE
     Dates: start: 20010101, end: 20160104
  56. FENTANYL [Concomitant]
     Active Substance: FENTANYL
     Indication: Product used for unknown indication
     Dosage: UNKNOWN DOSE
     Dates: start: 20010101, end: 20160104
  57. MIRTAZAPINE [Concomitant]
     Active Substance: MIRTAZAPINE
     Indication: Product used for unknown indication
     Dosage: UNKNOWN DOSE
     Dates: start: 20010101, end: 20160104
  58. NORTRIPTYLINE HYDROCHLORIDE [Concomitant]
     Active Substance: NORTRIPTYLINE HYDROCHLORIDE
     Indication: Product used for unknown indication
     Dosage: UNKNOWN DOSE
     Dates: start: 20010101, end: 20150507
  59. ZANAFLEX [Concomitant]
     Active Substance: TIZANIDINE HYDROCHLORIDE
     Indication: Product used for unknown indication
     Dosage: UNKNOWN DOSE
     Dates: start: 20010101, end: 20160104
  60. ATENOLOL [Concomitant]
     Active Substance: ATENOLOL
     Indication: Product used for unknown indication
     Dosage: UNKNOWN DOSE
     Dates: end: 201909
  61. CAFFEINE [Concomitant]
     Active Substance: CAFFEINE
     Indication: Product used for unknown indication
     Dosage: UNKNOWN DOSE
  62. CAFFEINE [Concomitant]
     Active Substance: CAFFEINE
     Dosage: UNKNOWN DOSE
  63. CELECOXIB [Concomitant]
     Active Substance: CELECOXIB
     Indication: Product used for unknown indication
     Dosage: UNKNOWN DOSE
  64. CYMBALTA [Concomitant]
     Active Substance: DULOXETINE HYDROCHLORIDE
     Indication: Product used for unknown indication
     Dosage: UNKNOWN DOSE
     Dates: end: 201305
  65. BISACODYL [Concomitant]
     Active Substance: BISACODYL
     Indication: Product used for unknown indication
     Dosage: UNK
     Dates: end: 201609
  66. FLOVENT [Concomitant]
     Active Substance: FLUTICASONE PROPIONATE
     Indication: Product used for unknown indication
     Dosage: UNK
     Dates: end: 201807
  67. FLUTICASONE PROPIONATE [Concomitant]
     Active Substance: FLUTICASONE PROPIONATE
     Indication: Product used for unknown indication
  68. IBUPROFEN [Concomitant]
     Active Substance: IBUPROFEN
     Indication: Product used for unknown indication
     Dosage: UNK
     Dates: end: 201608
  69. INDERAL LA [Concomitant]
     Active Substance: PROPRANOLOL HYDROCHLORIDE
     Indication: Product used for unknown indication
     Dosage: UNK
     Dates: end: 201609
  70. MAGNESIUM OXIDE [Concomitant]
     Active Substance: MAGNESIUM OXIDE
     Indication: Product used for unknown indication
  71. METHYLPREDNISOLONE [Concomitant]
     Active Substance: METHYLPREDNISOLONE
     Indication: Product used for unknown indication
     Dosage: UNK
  72. MIRALAX [Concomitant]
     Active Substance: POLYETHYLENE GLYCOL 3350
     Indication: Product used for unknown indication
  73. NYSTATIN AND TRIAMCINOLONE [Concomitant]
     Active Substance: NYSTATIN\TRIAMCINOLONE ACETONIDE
     Indication: Product used for unknown indication
  74. CLAVULANATE POTASSIUM [Concomitant]
     Active Substance: CLAVULANATE POTASSIUM
     Indication: Product used for unknown indication
  75. VRAYLAR [Concomitant]
     Active Substance: CARIPRAZINE
     Indication: Product used for unknown indication
     Dosage: UNK
     Dates: end: 201809
  76. ZOLPIDEM TARTRATE [Concomitant]
     Active Substance: ZOLPIDEM TARTRATE
     Indication: Product used for unknown indication
     Dosage: UNK
     Dates: end: 201009
  77. CLINDAMYCIN HYDROCHLORIDE [Concomitant]
     Active Substance: CLINDAMYCIN HYDROCHLORIDE
     Indication: Product used for unknown indication
     Dosage: 0000
     Dates: start: 20191118
  78. PROBIOTICS NOS [Concomitant]
     Active Substance: PROBIOTICS NOS
     Indication: Product used for unknown indication
  79. SPRAVATO [Concomitant]
     Active Substance: ESKETAMINE
     Indication: Product used for unknown indication
     Dosage: 0000
     Dates: start: 20220103
  80. BUTALBITAL AND ACETAMINOPHEN [Concomitant]
     Active Substance: ACETAMINOPHEN\BUTALBITAL
     Indication: Product used for unknown indication
     Dosage: 0000
     Dates: start: 20171003
  81. DOCUSATE SODIUM [Concomitant]
     Active Substance: DOCUSATE SODIUM
     Indication: Product used for unknown indication
     Dosage: 0000
     Dates: start: 20120801
  82. METHOCARBAMOL [Concomitant]
     Active Substance: METHOCARBAMOL
     Indication: Product used for unknown indication
     Dosage: UNK
     Dates: end: 201609
  83. METHOCARBAMOL [Concomitant]
     Active Substance: METHOCARBAMOL
     Dosage: 0000
     Dates: start: 20191201
  84. METHOCARBAMOL [Concomitant]
     Active Substance: METHOCARBAMOL
     Dosage: UNK
     Dates: end: 201609
  85. MINOXIDIL [Concomitant]
     Active Substance: MINOXIDIL
     Indication: Product used for unknown indication
     Dosage: UNK
     Dates: end: 201807
  86. MINOXIDIL [Concomitant]
     Active Substance: MINOXIDIL
     Dosage: UNK
     Dates: end: 201807
  87. VALIUM [Concomitant]
     Active Substance: DIAZEPAM
     Indication: Product used for unknown indication
     Dosage: 0000
     Dates: start: 20151215

REACTIONS (17)
  - Brain injury [Unknown]
  - Physical assault [Unknown]
  - Joint injury [Not Recovered/Not Resolved]
  - Condition aggravated [Not Recovered/Not Resolved]
  - Road traffic accident [Unknown]
  - Suicidal ideation [Recovering/Resolving]
  - Therapeutic procedure [Unknown]
  - Head injury [Unknown]
  - Spinal disorder [Unknown]
  - Condition aggravated [Unknown]
  - Contusion [Unknown]
  - Injury [Not Recovered/Not Resolved]
  - Concussion [Unknown]
  - Headache [Unknown]
  - Sleep apnoea syndrome [Recovering/Resolving]
  - Fall [Recovered/Resolved]
  - Dry mouth [Recovering/Resolving]

NARRATIVE: CASE EVENT DATE: 20190901
